FAERS Safety Report 4421404-7 (Version None)
Quarter: 2004Q3

REPORT INFORMATION
  Report Type: 
  Country: None (occurrence: None)
  Receive Date: 20040719
  Receipt Date: 20030627
  Transmission Date: 20050211
  Serious: Yes (Hospitalization)
  Sender: FDA-Public Use
  Company Number: PHEH2003US05465

PATIENT
  Sex: Female

DRUGS (7)
  1. LOTENSIN HCT (BENAZEPRIL HYDROCHLORIDE, HYDROCHLOROTHIAZIDE) TABLET [Suspect]
     Dosage: 5 MG BENAZEPRIL/6.25 MG HCT
     Dates: start: 20021001
  2. TRISENOX [Suspect]
     Indication: MULTIPLE MYELOMA
     Dates: start: 20020101, end: 20030324
  3. NEXIUM [Concomitant]
  4. PREMARIN [Concomitant]
  5. K-DUR 10 [Concomitant]
  6. ARTHROTEC [Concomitant]
  7. MAGNESIUM OXIDE [Concomitant]

REACTIONS (3)
  - ANGIONEUROTIC OEDEMA [None]
  - GLOSSITIS [None]
  - HYPERSENSITIVITY [None]
